FAERS Safety Report 7122703-0 (Version None)
Quarter: 2010Q4

REPORT INFORMATION
  Report Type: 
  Country: None (occurrence: None)
  Receive Date: 20101124
  Receipt Date: 20101118
  Transmission Date: 20110411
  Serious: Yes (Hospitalization, Other)
  Sender: FDA-Public Use
  Company Number: US-NAPPMUNDI-USA-2010-0054303

PATIENT
  Age: 57 Year
  Sex: Female

DRUGS (8)
  1. OXYCODONE HCL [Suspect]
     Indication: PAIN
     Dosage: 40 MG, TID
     Dates: start: 20050101
  2. OXYCODONE HCL [Suspect]
     Dosage: 20 MG, TID
     Dates: start: 20050101
  3. OXYCONTIN [Suspect]
     Indication: PAIN
     Dosage: 40 MG, UNK
  4. OXYCONTIN [Suspect]
     Dosage: 20 MG, UNK
  5. PREDNISONE [Suspect]
     Indication: PRODUCT USED FOR UNKNOWN INDICATION
  6. ROXICODONE [Concomitant]
     Indication: BREAKTHROUGH PAIN
     Dosage: 15 MG, TID
  7. DIURETIC                           /00022001/ [Concomitant]
     Indication: PRODUCT USED FOR UNKNOWN INDICATION
  8. VIT D [Concomitant]
     Indication: PRODUCT USED FOR UNKNOWN INDICATION

REACTIONS (4)
  - FOOT AMPUTATION [None]
  - FOOT OPERATION [None]
  - ROAD TRAFFIC ACCIDENT [None]
  - SKIN LESION [None]
